FAERS Safety Report 4443827-2 (Version None)
Quarter: 2004Q3

REPORT INFORMATION
  Report Type: 
  Country: None (occurrence: None)
  Receive Date: 20040729
  Receipt Date: 20040325
  Transmission Date: 20050211
  Serious: Yes (Hospitalization)
  Sender: FDA-Public Use
  Company Number: US-JNJFOC-20040305938

PATIENT
  Age: 15 Year
  Sex: Female

DRUGS (6)
  1. RISPERDAL [Suspect]
     Indication: DEPRESSION
     Dosage: 0.5 MG, 1 IN 1 DAY, ORAL; 1 MG, 1 IN 1 DAY, ORAL;  1.5 MG,  I 1 DAY, ORAL
     Route: 048
     Dates: start: 20040213, end: 20040304
  2. RISPERDAL [Suspect]
     Indication: DEPRESSION
     Dosage: 0.5 MG, 1 IN 1 DAY, ORAL; 1 MG, 1 IN 1 DAY, ORAL;  1.5 MG,  I 1 DAY, ORAL
     Route: 048
     Dates: start: 20040304, end: 20040318
  3. RISPERDAL [Suspect]
     Indication: DEPRESSION
     Dosage: 0.5 MG, 1 IN 1 DAY, ORAL; 1 MG, 1 IN 1 DAY, ORAL;  1.5 MG,  I 1 DAY, ORAL
     Route: 048
     Dates: start: 20040318
  4. LEXAPRO [Suspect]
     Indication: DEPRESSION
     Dosage: 10 MG, 1 IN 1 DAY, ORAL;  20 MG, 1 IN 1 DAY, ORAL;  30 MG, 1 IN 1 DAY, ORAL
     Route: 048
     Dates: start: 20040213, end: 20040304
  5. LEXAPRO [Suspect]
     Indication: DEPRESSION
     Dosage: 10 MG, 1 IN 1 DAY, ORAL;  20 MG, 1 IN 1 DAY, ORAL;  30 MG, 1 IN 1 DAY, ORAL
     Route: 048
     Dates: start: 20040304, end: 20040318
  6. LEXAPRO [Suspect]
     Indication: DEPRESSION
     Dosage: 10 MG, 1 IN 1 DAY, ORAL;  20 MG, 1 IN 1 DAY, ORAL;  30 MG, 1 IN 1 DAY, ORAL
     Route: 048
     Dates: start: 20040318

REACTIONS (2)
  - SELF INJURIOUS BEHAVIOUR [None]
  - SUICIDAL IDEATION [None]
